FAERS Safety Report 7864457-6 (Version None)
Quarter: 2011Q4

REPORT INFORMATION
  Report Type: 
  Country: None (occurrence: None)
  Receive Date: 20111028
  Receipt Date: 20111017
  Transmission Date: 20120403
  Serious: Yes (Other)
  Sender: FDA-Public Use
  Company Number: VE-JNJFOC-20111009178

PATIENT
  Age: 74 Year
  Sex: Male

DRUGS (3)
  1. CIPROFLOXACIN [Concomitant]
     Dates: start: 20111004, end: 20111011
  2. LOXONIN [Concomitant]
     Dates: start: 20111004
  3. XARELTO [Suspect]
     Indication: LIMB OPERATION
     Route: 048
     Dates: start: 20111004, end: 20111006

REACTIONS (1)
  - RESPIRATORY DISTRESS [None]
